FAERS Safety Report 8319097-1 (Version None)
Quarter: 2012Q2

REPORT INFORMATION
  Report Type: 
  Country: None (occurrence: None)
  Receive Date: 20120427
  Receipt Date: 20120420
  Transmission Date: 20120825
  Serious: Yes (Hospitalization)
  Sender: FDA-Public Use
  Company Number: FR-SHIRE-SPV1-2012-00420

PATIENT
  Sex: Female
  Weight: 76 kg

DRUGS (1)
  1. FIRAZYR [Suspect]
     Indication: HEREDITARY ANGIOEDEMA
     Dosage: UNK
     Dates: start: 20101230

REACTIONS (2)
  - LARYNGEAL OEDEMA [None]
  - TONGUE OEDEMA [None]
